FAERS Safety Report 4423943-1 (Version None)
Quarter: 2004Q3

REPORT INFORMATION
  Report Type: 
  Country: None (occurrence: None)
  Receive Date: 20040805
  Receipt Date: 20040726
  Transmission Date: 20050211
  Serious: Yes (Hospitalization)
  Sender: FDA-Public Use
  Company Number: 2002122146IE

PATIENT
  Age: 64 Year
  Sex: Female

DRUGS (1)
  1. EXEMESTANE VS CODE BROKEN (EXEMESTANE VS CODE BROKEN) TABLET [Suspect]
     Indication: BREAST CANCER
     Dosage: 25 MG, QD, ORAL
     Route: 048
     Dates: start: 20011204

REACTIONS (1)
  - VAGINAL HAEMORRHAGE [None]
